FAERS Safety Report 10758764 (Version 1)
Quarter: 2015Q1

REPORT INFORMATION
  Report Type: Spontaneous
  Country: US (occurrence: None)
  Receive Date: 20150123
  Receipt Date: 20150123
  Transmission Date: 20150721
  Serious: No
  Sender: FDA-Public Use
  Company Number: TPA2013A02008

PATIENT
  Age: 76 Year
  Sex: Male

DRUGS (13)
  1. ASPIRIN. [Concomitant]
     Active Substance: ASPIRIN
  2. EPOGEN [Concomitant]
     Active Substance: ERYTHROPOIETIN
  3. NORVASC [Concomitant]
     Active Substance: AMLODIPINE BESYLATE
  4. CARVEDILOL. [Concomitant]
     Active Substance: CARVEDILOL
  5. TYLENOL [Concomitant]
     Active Substance: ACETAMINOPHEN
  6. VITAMIN D3 [Concomitant]
     Active Substance: CHOLECALCIFEROL
  7. PHOSLO [Concomitant]
     Active Substance: CALCIUM ACETATE
  8. OMONTYS [Suspect]
     Active Substance: PEGINESATIDE
     Indication: NEPHROGENIC ANAEMIA
     Route: 042
     Dates: start: 20130208, end: 20130208
  9. PEPCID [Concomitant]
     Active Substance: FAMOTIDINE
  10. EMLA (LIDOCAINE, PRILOCAINE) [Concomitant]
  11. NEPHROCAPS (ASCORBIC ACID, PYRIDOXINE HYDROCHLORIDE, BIOTIN, FOLIC ACID, THIAMINE HYDROCHLORIDE, CYANOCOBALAMIN, PANTOTHENIC ACID, RIBOFLAVIN, NICOTINAMIDE) [Concomitant]
  12. NEPHRO (CALCIUM ACETATE) [Concomitant]
  13. TYLENOL EXTRA STRENGTH (PARACETAMOL) [Concomitant]

REACTIONS (4)
  - Hypersensitivity [None]
  - Feeling abnormal [None]
  - Malaise [None]
  - Dizziness [None]

NARRATIVE: CASE EVENT DATE: 20130209
